FAERS Safety Report 7589960-8 (Version None)
Quarter: 2011Q3

REPORT INFORMATION
  Report Type: 
  Country: None (occurrence: None)
  Receive Date: 20110705
  Receipt Date: 20090908
  Transmission Date: 20111222
  Serious: Yes (Hospitalization)
  Sender: FDA-Public Use
  Company Number: A0807511A

PATIENT
  Age: 72 Year
  Sex: Female
  Weight: 70.9 kg

DRUGS (12)
  1. VIOXX [Concomitant]
  2. WARFARIN SODIUM [Concomitant]
  3. ALPHAGAN [Concomitant]
  4. AVANDIA [Suspect]
     Indication: DIABETES MELLITUS
     Dosage: 4MG PER DAY
     Route: 048
     Dates: start: 20040101, end: 20070101
  5. METOPROLOL TARTRATE [Concomitant]
  6. INSULIN [Concomitant]
  7. DIGOXIN [Concomitant]
  8. COMBIVENT [Concomitant]
  9. ALTACE [Concomitant]
  10. PRAVACHOL [Concomitant]
  11. NEURONTIN [Concomitant]
  12. COLCHICINE [Concomitant]

REACTIONS (8)
  - CAROTID ARTERY STENOSIS [None]
  - UPPER GASTROINTESTINAL HAEMORRHAGE [None]
  - DIZZINESS [None]
  - COAGULOPATHY [None]
  - CARDIAC FAILURE CONGESTIVE [None]
  - PNEUMONIA [None]
  - TRANSIENT ISCHAEMIC ATTACK [None]
  - ATRIAL FIBRILLATION [None]
